FAERS Safety Report 21407094 (Version 6)
Quarter: 2023Q1

REPORT INFORMATION
  Report Type: Report from Study
  Country: JP (occurrence: JP)
  Receive Date: 20221004
  Receipt Date: 20230328
  Transmission Date: 20230418
  Serious: Yes (Hospitalization, Other)
  Sender: FDA-Public Use
  Company Number: JP-BIOGEN-2022BI01157595

PATIENT
  Age: 28 Year
  Sex: Female
  Weight: 55.9 kg

DRUGS (4)
  1. TECFIDERA [Suspect]
     Active Substance: DIMETHYL FUMARATE
     Indication: Myelin oligodendrocyte glycoprotein antibody-associated disease
     Route: 050
     Dates: start: 20181114, end: 20190116
  2. TECFIDERA [Suspect]
     Active Substance: DIMETHYL FUMARATE
     Route: 050
     Dates: start: 20190116, end: 20191028
  3. FINGOLIMOD HYDROCHLORIDE [Suspect]
     Active Substance: FINGOLIMOD HYDROCHLORIDE
     Indication: Multiple sclerosis
     Route: 050
     Dates: start: 20150212, end: 20181107
  4. PREDNISOLONE [Suspect]
     Active Substance: PREDNISOLONE
     Indication: Myelin oligodendrocyte glycoprotein antibody-associated disease
     Route: 050
     Dates: start: 20190409

REACTIONS (5)
  - JC virus CSF test positive [Recovered/Resolved]
  - Myelin oligodendrocyte glycoprotein antibody-associated disease [Recovered/Resolved with Sequelae]
  - Unintentional use for unapproved indication [Unknown]
  - Lymphopenia [Recovered/Resolved]
  - Therapeutic product effect incomplete [Unknown]

NARRATIVE: CASE EVENT DATE: 20181114
